FAERS Safety Report 19160455 (Version 2)
Quarter: 2021Q3

REPORT INFORMATION
  Report Type: Report from Study
  Country: US (occurrence: US)
  Receive Date: 20210420
  Receipt Date: 20210702
  Transmission Date: 20211014
  Serious: Yes (Other)
  Sender: FDA-Public Use
  Company Number: US-009507513-2012USA012774

PATIENT
  Age: 66 Year
  Sex: Female
  Weight: 98.87 kg

DRUGS (17)
  1. PREDNISONE. [Suspect]
     Active Substance: PREDNISONE
     Dosage: 6 TABLETS FOR 3 DAYS
     Route: 048
     Dates: start: 20210222, end: 20210224
  2. PREDNISONE. [Suspect]
     Active Substance: PREDNISONE
     Dosage: 3 TABLETS, EVERY OTHER DAY FOR 3 DAYS
     Route: 048
     Dates: start: 20210309
  3. XARELTO [Concomitant]
     Active Substance: RIVAROXABAN
     Indication: THROMBOSIS
     Dosage: 40 MILLIGRAM
     Route: 048
  4. XARELTO [Concomitant]
     Active Substance: RIVAROXABAN
     Dosage: ALTERNATES 10 MG AND 20 MG EVERY OTHER DAY
     Route: 048
  5. DULOXETINE HYDROCHLORIDE. [Concomitant]
     Active Substance: DULOXETINE HYDROCHLORIDE
  6. PEMBROLIZUMAB. [Suspect]
     Active Substance: PEMBROLIZUMAB
     Indication: SQUAMOUS CELL CARCINOMA OF THE VULVA
  7. PREDNISONE. [Suspect]
     Active Substance: PREDNISONE
     Dosage: 4 TABLETS FOR 3 DAYS
     Route: 048
     Dates: start: 20210228, end: 20210302
  8. PREDNISONE. [Suspect]
     Active Substance: PREDNISONE
     Dosage: 1 TABLET FOR 3 DAYS
     Route: 048
     Dates: start: 20210306, end: 20210308
  9. PEMBROLIZUMAB. [Suspect]
     Active Substance: PEMBROLIZUMAB
     Indication: CERVIX CARCINOMA STAGE IV
     Dosage: 200 MG EVERY 3 WEEKS
     Route: 042
     Dates: start: 20201123, end: 20210412
  10. TYLENOL [Concomitant]
     Active Substance: ACETAMINOPHEN
     Dosage: AS NEEDED
  11. MAGNESIUM [Concomitant]
     Active Substance: MAGNESIUM
     Dosage: 400MG DAILY AS TOLERATED
  12. MAGNESIUM [Concomitant]
     Active Substance: MAGNESIUM
     Dosage: 1 GRAM PER HOUR ON A SLOW DRIP
  13. XARELTO [Concomitant]
     Active Substance: RIVAROXABAN
     Dosage: ALTERNATES 10 MG AND 20 MG EVERY OTHER DAY
     Route: 048
  14. PREDNISONE. [Suspect]
     Active Substance: PREDNISONE
     Dosage: 5 TABLETS FOR 3 DAYS
     Route: 048
     Dates: start: 20210225, end: 20210227
  15. MAGNESIUM [Concomitant]
     Active Substance: MAGNESIUM
     Dosage: ADDITIONAL 2 GRAM
  16. PREDNISONE. [Suspect]
     Active Substance: PREDNISONE
     Dosage: 3 TABLETS FOR 3 DAYS
     Route: 048
     Dates: start: 20210303, end: 20210305
  17. GABAPENTIN. [Concomitant]
     Active Substance: GABAPENTIN

REACTIONS (42)
  - Blood magnesium decreased [Unknown]
  - Urinary tract infection [Unknown]
  - Gait disturbance [Unknown]
  - Dry mouth [Not Recovered/Not Resolved]
  - Dermatitis [Recovered/Resolved]
  - Vomiting [Unknown]
  - Dizziness [Unknown]
  - Renal injury [Unknown]
  - Malaise [Unknown]
  - Malignant neoplasm progression [Not Recovered/Not Resolved]
  - Arthralgia [Recovering/Resolving]
  - Erythema [Recovered/Resolved]
  - Lymphadenopathy [Not Recovered/Not Resolved]
  - Peripheral swelling [Not Recovered/Not Resolved]
  - Hypersensitivity [Not Recovered/Not Resolved]
  - Scar pain [Recovered/Resolved]
  - Joint swelling [Not Recovered/Not Resolved]
  - Diarrhoea [Unknown]
  - Malaise [Unknown]
  - Anaemia [Not Recovered/Not Resolved]
  - Cyst [Not Recovered/Not Resolved]
  - Discomfort [Not Recovered/Not Resolved]
  - Adverse event [Unknown]
  - Heart injury [Unknown]
  - Limb discomfort [Not Recovered/Not Resolved]
  - Abdominal pain upper [Recovering/Resolving]
  - Abdominal discomfort [Recovering/Resolving]
  - Nausea [Unknown]
  - Influenza like illness [Unknown]
  - Fatigue [Not Recovered/Not Resolved]
  - Limb discomfort [Unknown]
  - Blood magnesium decreased [Not Recovered/Not Resolved]
  - Headache [Not Recovered/Not Resolved]
  - Pyrexia [Recovering/Resolving]
  - Headache [Not Recovered/Not Resolved]
  - Feeling jittery [Unknown]
  - Sleep disorder [Not Recovered/Not Resolved]
  - Urticaria [Unknown]
  - Peripheral ischaemia [Unknown]
  - Pain [Not Recovered/Not Resolved]
  - Pyrexia [Recovering/Resolving]
  - Embolism [Unknown]

NARRATIVE: CASE EVENT DATE: 2020
